FAERS Safety Report 6610783-8 (Version None)
Quarter: 2010Q1

REPORT INFORMATION
  Report Type: 
  Country: None (occurrence: None)
  Receive Date: 20100302
  Receipt Date: 20100222
  Transmission Date: 20100710
  Serious: Yes (Other)
  Sender: FDA-Public Use
  Company Number: B0636196A

PATIENT
  Age: 12 Year
  Sex: Female

DRUGS (3)
  1. LAMICTAL [Suspect]
     Indication: DRUG USE FOR UNKNOWN INDICATION
     Route: 048
     Dates: start: 20100212
  2. DEPAKENE [Concomitant]
     Route: 048
  3. TEGRETOL [Concomitant]
     Route: 048

REACTIONS (2)
  - HYPOGLYCAEMIA [None]
  - LETHARGY [None]
